FAERS Safety Report 5413932-2 (Version None)
Quarter: 2007Q3

REPORT INFORMATION
  Report Type: 
  Country: None (occurrence: None)
  Receive Date: 20070814
  Receipt Date: 20070808
  Transmission Date: 20080115
  Serious: Yes (Life-Threatening, Hospitalization, Disabling)
  Sender: FDA-Public Use
  Company Number: DE-BOEHRINGER INGELHEIM PHARMACEUTICALS, INC.-2007-DE-04710DE

PATIENT
  Sex: Female
  Weight: 74 kg

DRUGS (5)
  1. AGGRENOX [Suspect]
     Indication: ISCHAEMIC STROKE
     Dates: start: 20070501
  2. PLAVIX [Concomitant]
     Indication: ISCHAEMIC STROKE
     Route: 048
     Dates: end: 20070430
  3. GABAPENTIN [Concomitant]
     Indication: TRIGEMINAL NEURALGIA
     Route: 048
  4. LEVOTHYROXINE SODIUM [Concomitant]
     Indication: HYPOTHYROIDISM
     Route: 048
  5. LEVOTHYROXINE SODIUM [Concomitant]
     Indication: GOITRE

REACTIONS (4)
  - CEREBRAL HAEMORRHAGE [None]
  - DYSPHAGIA [None]
  - DYSPHASIA [None]
  - SEPSIS [None]
